FAERS Safety Report 13875170 (Version 1)
Quarter: 2017Q3

REPORT INFORMATION
  Report Type: Spontaneous
  Country: GB (occurrence: GB)
  Receive Date: 20170816
  Receipt Date: 20170816
  Transmission Date: 20171127
  Serious: Yes (Life-Threatening)
  Sender: FDA-Public Use
  Company Number: GB-TEVA-795229ACC

PATIENT
  Age: 76 Year
  Sex: Male

DRUGS (4)
  1. METFORMIN HYDROCHLORIDE. [Suspect]
     Active Substance: METFORMIN HYDROCHLORIDE
     Route: 048
  2. FUROSEMIDE. [Suspect]
     Active Substance: FUROSEMIDE
     Route: 048
  3. LINAGLIPTIN [Suspect]
     Active Substance: LINAGLIPTIN
     Route: 048
  4. LISINOPRIL. [Suspect]
     Active Substance: LISINOPRIL
     Indication: HYPERTENSION
     Route: 048

REACTIONS (2)
  - Acute kidney injury [Unknown]
  - Diabetic ketoacidotic hyperglycaemic coma [Recovering/Resolving]
